FAERS Safety Report 4380941-4 (Version None)
Quarter: 2004Q2

REPORT INFORMATION
  Report Type: 
  Country: None (occurrence: None)
  Receive Date: 20040614
  Receipt Date: 20040603
  Transmission Date: 20050107
  Serious: Yes (Other)
  Sender: FDA-Public Use
  Company Number: HQWYE255904JUN04

PATIENT
  Sex: Female

DRUGS (1)
  1. CORDARONE [Suspect]
     Indication: VENTRICULAR EXTRASYSTOLES
     Dosage: 200 MG 2X PER 1 DAY
     Dates: start: 20040301

REACTIONS (1)
  - BREAST CANCER [None]
